FAERS Safety Report 4475299-6 (Version None)
Quarter: 2004Q4

REPORT INFORMATION
  Report Type: 
  Country: None (occurrence: None)
  Receive Date: 20041013
  Receipt Date: 20041013
  Transmission Date: 20050328
  Serious: Yes (Hospitalization, Disabling)
  Sender: FDA-Public Use
  Company Number: None

PATIENT
  Age: 60 Year
  Sex: Female
  Weight: 85.2762 kg

DRUGS (9)
  1. ENBREL [Suspect]
     Indication: PSORIASIS
     Dosage: 50 MG SQ WEEKLY
     Route: 058
     Dates: start: 20040401, end: 20040729
  2. PREMARIN [Concomitant]
  3. DOXEPIN HCL [Concomitant]
  4. AMARYL [Concomitant]
  5. ACTOS [Concomitant]
  6. LANTUS [Concomitant]
  7. PREVACID [Concomitant]
  8. ATENOLOL [Concomitant]
  9. TRICOR [Concomitant]

REACTIONS (10)
  - ABDOMINAL PAIN [None]
  - DIARRHOEA [None]
  - FLANK PAIN [None]
  - INFLAMMATION [None]
  - NAUSEA [None]
  - NEPHROLITHIASIS [None]
  - PANCREATIC ATROPHY [None]
  - RENAL FAILURE [None]
  - RETROPERITONEAL FIBROSIS [None]
  - URETERIC OBSTRUCTION [None]
